FAERS Safety Report 7955074-8 (Version None)
Quarter: 2011Q4

REPORT INFORMATION
  Report Type: 
  Country: None (occurrence: None)
  Receive Date: 20111202
  Receipt Date: 20111124
  Transmission Date: 20120403
  Serious: Yes (Death, Hospitalization, Other)
  Sender: FDA-Public Use
  Company Number: DE-ROCHE-1003870

PATIENT
  Sex: Female
  Weight: 73 kg

DRUGS (4)
  1. XELODA [Suspect]
     Dates: start: 20110824, end: 20110828
  2. AVASTIN [Suspect]
     Indication: BREAST CANCER METASTATIC
     Route: 042
     Dates: start: 20110803, end: 20110824
  3. XELODA [Suspect]
     Indication: BREAST CANCER METASTATIC
     Route: 048
     Dates: start: 20110803, end: 20110824
  4. CARBOPLATIN [Concomitant]
     Route: 065
     Dates: start: 20050801

REACTIONS (9)
  - FALL [None]
  - FAECALOMA [None]
  - NEOPLASM MALIGNANT [None]
  - PULMONARY EMBOLISM [None]
  - TUMOUR PAIN [None]
  - METASTASES TO BONE [None]
  - SPINAL FRACTURE [None]
  - METASTASES TO CENTRAL NERVOUS SYSTEM [None]
  - CEREBRAL HAEMORRHAGE [None]
